FAERS Safety Report 23482197 (Version 4)
Quarter: 2024Q1

REPORT INFORMATION
  Report Type: Spontaneous
  Country: US (occurrence: US)
  Receive Date: 20240205
  Receipt Date: 20240320
  Transmission Date: 20240409
  Serious: Yes (Other)
  Sender: FDA-Public Use
  Company Number: US-PFIZER INC-PV202400015563

PATIENT
  Age: 70 Year
  Sex: Female
  Weight: 77.7 kg

DRUGS (3)
  1. IBRANCE [Suspect]
     Active Substance: PALBOCICLIB
     Indication: Neoplasm malignant
     Dosage: 125 MG
  2. IBRANCE [Suspect]
     Active Substance: PALBOCICLIB
     Dosage: 100 MG, CYCLIC (DAILY FOR 21 DAYS, THEN OFF FOR 7 DAYS)
     Route: 048
  3. IBRANCE [Suspect]
     Active Substance: PALBOCICLIB
     Dosage: 100 MG, CYCLIC (X2/DAY, 7 DAYS OFF)
     Route: 048

REACTIONS (5)
  - Neutropenia [Recovered/Resolved]
  - Product prescribing error [Unknown]
  - White blood cell disorder [Unknown]
  - Oral disorder [Unknown]
  - Stomatitis [Recovered/Resolved]
